FAERS Safety Report 12215427 (Version 1)
Quarter: 2016Q1

REPORT INFORMATION
  Report Type: Spontaneous
  Country: US (occurrence: US)
  Receive Date: 20160328
  Receipt Date: 20160328
  Transmission Date: 20160526
  Serious: Yes (Other)
  Sender: FDA-Public Use
  Company Number: US-MDT-ADR-2015-02404

PATIENT
  Age: 73 Year
  Sex: Male

DRUGS (12)
  1. LYRICA [Suspect]
     Active Substance: PREGABALIN
  2. ISTALOL [Suspect]
     Active Substance: TIMOLOL MALEATE
  3. BUPIVACAINE [Suspect]
     Active Substance: BUPIVACAINE
     Dosage: 2.145 MG/DAY
     Route: 037
  4. BACLOFEN. [Suspect]
     Active Substance: BACLOFEN
     Dosage: 53.62 MCG/DAY
     Route: 037
  5. DILTIAZEM [Suspect]
     Active Substance: DILTIAZEM
  6. NORCO [Suspect]
     Active Substance: ACETAMINOPHEN\HYDROCODONE BITARTRATE
  7. PAXIL [Suspect]
     Active Substance: PAROXETINE HYDROCHLORIDE
  8. CARAFATE [Suspect]
     Active Substance: SUCRALFATE
  9. LEVOTHYROXINE. [Suspect]
     Active Substance: LEVOTHYROXINE
  10. DICLOFENAC-MISOPOSTOL [Suspect]
     Active Substance: DICLOFENAC SODIUM\MISOPROSTOL
  11. ATIVAN [Suspect]
     Active Substance: LORAZEPAM
  12. DILAUDID [Suspect]
     Active Substance: HYDROMORPHONE HYDROCHLORIDE
     Dosage: 1.787 MG/DAY
     Route: 037

REACTIONS (12)
  - Hallucination, auditory [None]
  - Wound decomposition [None]
  - Malaise [None]
  - Staphylococcal infection [None]
  - Wound dehiscence [None]
  - Medical device site infection [None]
  - Hallucination, olfactory [None]
  - Purulence [None]
  - Adverse drug reaction [None]
  - Hallucination, visual [None]
  - Staphylococcal skin infection [None]
  - Medical device site discharge [None]
